FAERS Safety Report 11248263 (Version 1)
Quarter: 2015Q3

REPORT INFORMATION
  Report Type: Spontaneous
  Country: US (occurrence: None)
  Receive Date: 20150707
  Receipt Date: 20150707
  Transmission Date: 20151125
  Serious: No
  Sender: FDA-Public Use
  Company Number: None

PATIENT
  Age: 15 Year
  Sex: Male
  Weight: 76.3 kg

DRUGS (6)
  1. PHENERGAN [Concomitant]
     Active Substance: PROMETHAZINE HYDROCHLORIDE
  2. MORPHINE [Concomitant]
     Active Substance: MORPHINE
  3. MORPHINE [Concomitant]
     Active Substance: MORPHINE
  4. PREDNISONE. [Suspect]
     Active Substance: PREDNISONE
     Dates: end: 20150529
  5. FLEXERIL [Concomitant]
     Active Substance: CYCLOBENZAPRINE HYDROCHLORIDE
  6. HYDRALAZINE [Concomitant]
     Active Substance: HYDRALAZINE HYDROCHLORIDE

REACTIONS (10)
  - Oxygen saturation decreased [None]
  - Pruritus [None]
  - Arachnoid cyst [None]
  - Posterior reversible encephalopathy syndrome [None]
  - Central nervous system lesion [None]
  - Seizure [None]
  - Aggression [None]
  - Hypopnoea [None]
  - Unresponsive to stimuli [None]
  - Blood pressure systolic increased [None]

NARRATIVE: CASE EVENT DATE: 20150629
